FAERS Safety Report 5911537-8 (Version None)
Quarter: 2008Q4

REPORT INFORMATION
  Report Type: 
  Country: None (occurrence: None)
  Receive Date: 20081003
  Receipt Date: 20080923
  Transmission Date: 20090506
  Serious: Yes (Other)
  Sender: FDA-Public Use
  Company Number: 2008-03559

PATIENT
  Sex: 0

DRUGS (1)
  1. VELCADE [Suspect]
     Indication: MULTIPLE MYELOMA
     Dosage: 1.3 MG/M2,   INTRAVENOUS
     Route: 042

REACTIONS (4)
  - ASPERGILLOSIS [None]
  - CYTOMEGALOVIRUS INFECTION [None]
  - FUNGAL INFECTION [None]
  - ORAL FUNGAL INFECTION [None]
